FAERS Safety Report 4369908-X (Version None)
Quarter: 2004Q2

REPORT INFORMATION
  Report Type: 
  Country: None (occurrence: None)
  Receive Date: 20040527
  Receipt Date: 20040510
  Transmission Date: 20050107
  Serious: Yes (Other)
  Sender: FDA-Public Use
  Company Number: FR_040303692

PATIENT
  Age: 23 Year
  Sex: Female

DRUGS (2)
  1. PROZAC [Suspect]
     Indication: BULIMIA NERVOSA
     Dosage: 20 MG/3 DAY
     Dates: start: 20030101
  2. LEVOTHYROX (LEVOTHYROXINE SODIUM) [Concomitant]

REACTIONS (1)
  - MEDULLARY THYROID CANCER [None]
